FAERS Safety Report 9387074 (Version 1)
Quarter: 2013Q3

REPORT INFORMATION
  Report Type: Spontaneous
  Country: JP (occurrence: JP)
  Receive Date: 20130708
  Receipt Date: 20130708
  Transmission Date: 20140515
  Serious: Yes (Other)
  Sender: FDA-Public Use
  Company Number: PHHY2013JP069712

PATIENT
  Age: 60 Year
  Sex: Male

DRUGS (5)
  1. VINCRISTINE [Suspect]
     Indication: LYMPHOMA
  2. DOXORUBICIN [Suspect]
     Indication: LYMPHOMA
  3. PREDNISOLONE [Suspect]
     Indication: LYMPHOMA
  4. CYCLOPHOSPHAMIDE [Suspect]
     Indication: LYMPHOMA
  5. RITUXIMAB [Suspect]
     Indication: LYMPHOMA

REACTIONS (6)
  - Myelodysplastic syndrome [Unknown]
  - Thrombocytopenia [Unknown]
  - Disease recurrence [Unknown]
  - Lymphadenopathy [Unknown]
  - Hepatomegaly [Unknown]
  - Ureteric dilatation [Unknown]
